FAERS Safety Report 10610857 (Version 1)
Quarter: 2014Q4

REPORT INFORMATION
  Report Type: Spontaneous
  Country: US (occurrence: US)
  Receive Date: 20141126
  Receipt Date: 20141126
  Transmission Date: 20150529
  Serious: No
  Sender: FDA-Public Use
  Company Number: US-BRISTOL-MYERS SQUIBB COMPANY-21469267

PATIENT
  Age: 70 Year
  Sex: Female

DRUGS (2)
  1. IXEMPRA [Suspect]
     Active Substance: IXABEPILONE
     Indication: BREAST CANCER
     Dosage: ONGOING
     Route: 042
     Dates: start: 20140908
  2. XELODA [Concomitant]
     Active Substance: CAPECITABINE

REACTIONS (1)
  - Hypersensitivity [Unknown]

NARRATIVE: CASE EVENT DATE: 20140908
